FAERS Safety Report 6504934-3 (Version None)
Quarter: 2009Q4

REPORT INFORMATION
  Report Type: 
  Country: None (occurrence: None)
  Receive Date: 20091201
  Receipt Date: 20091029
  Transmission Date: 20100525
  Serious: Yes (Hospitalization)
  Sender: FDA-Public Use
  Company Number: 2008-181036-NL

PATIENT
  Age: 28 Year
  Sex: Female
  Weight: 61.2 kg

DRUGS (1)
  1. NUVARING [Suspect]
     Indication: CONTRACEPTION
     Dosage: 1 DF
     Dates: start: 20050801, end: 20060719

REACTIONS (1)
  - INTRACRANIAL VENOUS SINUS THROMBOSIS [None]
